FAERS Safety Report 22694636 (Version 2)
Quarter: 2023Q4

REPORT INFORMATION
  Report Type: Other
  Country: US (occurrence: None)
  Receive Date: 20230712
  Receipt Date: 20231215
  Transmission Date: 20240110
  Serious: Yes (Other)
  Sender: FDA-Public Use
  Company Number: US-ROCHE-3383377

PATIENT
  Age: 68 Year
  Sex: Female
  Weight: 59.928 kg

DRUGS (1)
  1. OCREVUS [Suspect]
     Active Substance: OCRELIZUMAB
     Indication: Primary progressive multiple sclerosis
     Dosage: THERAPY DATE 25/SEP/2023
     Route: 042
     Dates: start: 20180619

REACTIONS (4)
  - Therapeutic response shortened [Unknown]
  - Fall [Unknown]
  - Lower limb fracture [Recovering/Resolving]
  - Uterine cancer [Not Recovered/Not Resolved]

NARRATIVE: CASE EVENT DATE: 20230530
